FAERS Safety Report 7981331-5 (Version None)
Quarter: 2011Q4

REPORT INFORMATION
  Report Type: 
  Country: None (occurrence: None)
  Receive Date: 20111213
  Receipt Date: 20110120
  Transmission Date: 20120403
  Serious: Yes (Hospitalization)
  Sender: FDA-Public Use
  Company Number: US-2011-10876

PATIENT
  Age: 44 Year
  Sex: Male

DRUGS (4)
  1. CYCLOSPORINE [Concomitant]
  2. ALEMTUZUMAB (ALEMTUZUMAB) [Concomitant]
  3. BUSULFAN [Suspect]
     Indication: STEM CELL TRANSPLANT
  4. CYCLOPHOSPHAMIDE [Concomitant]

REACTIONS (9)
  - CYTOMEGALOVIRUS INFECTION [None]
  - PNEUMONIA [None]
  - HUMAN HERPESVIRUS 6 INFECTION [None]
  - PSEUDOMONAS INFECTION [None]
  - ACINETOBACTER BACTERAEMIA [None]
  - ENTEROCOCCAL INFECTION [None]
  - APLASIA PURE RED CELL [None]
  - PANCYTOPENIA [None]
  - TRANSPLANT FAILURE [None]
